FAERS Safety Report 7797695-1 (Version None)
Quarter: 2011Q4

REPORT INFORMATION
  Report Type: 
  Country: None (occurrence: None)
  Receive Date: 20111005
  Receipt Date: 20110923
  Transmission Date: 20120403
  Serious: Yes (Other)
  Sender: FDA-Public Use
  Company Number: PHHY2011IT85029

PATIENT

DRUGS (3)
  1. TASIGNA [Suspect]
     Indication: CHRONIC MYELOID LEUKAEMIA
     Dosage: 600 MG, DAILY
     Route: 048
     Dates: start: 20101109, end: 20110829
  2. LASIX [Concomitant]
     Dosage: 25 MG, UNK
  3. LYRICA [Concomitant]
     Dosage: 150 MG, UNK
     Route: 048

REACTIONS (1)
  - ARTERIAL DISORDER [None]
